FAERS Safety Report 11183084 (Version 1)
Quarter: 2015Q2

REPORT INFORMATION
  Report Type: Spontaneous
  Country: US (occurrence: US)
  Receive Date: 20150611
  Receipt Date: 20150611
  Transmission Date: 20150821
  Serious: Yes (Other)
  Sender: FDA-Public Use
  Company Number: US-B.I. PHARMACEUTICALS,INC./RIDGEFIELD-2015-BI-31124BP

PATIENT
  Sex: Female
  Weight: 59.42 kg

DRUGS (2)
  1. VFEND [Concomitant]
     Active Substance: VORICONAZOLE
     Indication: PRODUCT USED FOR UNKNOWN INDICATION
     Dosage: 2 ANZ
     Route: 048
  2. PRADAXA [Suspect]
     Active Substance: DABIGATRAN ETEXILATE MESYLATE
     Indication: TRANSIENT ISCHAEMIC ATTACK
     Route: 048

REACTIONS (6)
  - Anticoagulant therapy [Unknown]
  - Bronchiectasis [Unknown]
  - Transient ischaemic attack [Unknown]
  - Bronchopulmonary aspergillosis [Unknown]
  - Compression fracture [Unknown]
  - Chronic respiratory failure [Unknown]
